FAERS Safety Report 21710282 (Version 2)
Quarter: 2022Q4

REPORT INFORMATION
  Report Type: Spontaneous
  Country: JP (occurrence: JP)
  Receive Date: 20221211
  Receipt Date: 20221228
  Transmission Date: 20230112
  Serious: Yes (Hospitalization, Other)
  Sender: FDA-Public Use
  Company Number: JP-DSJP-DSJ-2022-143892

PATIENT
  Age: 42 Year
  Sex: Male

DRUGS (3)
  1. DENOSUMAB [Suspect]
     Active Substance: DENOSUMAB
     Indication: Osteoporosis
     Dosage: 60 MG
     Route: 058
  2. EVOCALCET [Concomitant]
     Active Substance: EVOCALCET
     Indication: Chronic kidney disease
     Dosage: 3MG/DAY
     Route: 065
  3. LANTHANUM CARBONATE [Concomitant]
     Active Substance: LANTHANUM CARBONATE
     Indication: Chronic kidney disease
     Dosage: 1750MG/DAY
     Route: 065

REACTIONS (1)
  - Spinal compression fracture [Unknown]
